FAERS Safety Report 7995036-8 (Version None)
Quarter: 2011Q4

REPORT INFORMATION
  Report Type: 
  Country: None (occurrence: None)
  Receive Date: 20111220
  Receipt Date: 20111209
  Transmission Date: 20120403
  Serious: Yes (Death, Life-Threatening, Hospitalization, Other)
  Sender: FDA-Public Use
  Company Number: FR-PFIZER INC-2011292830

PATIENT
  Age: 51 Year
  Sex: Male
  Weight: 88.5 kg

DRUGS (7)
  1. PF-02341066 [Suspect]
     Indication: LUNG NEOPLASM MALIGNANT
     Dosage: 250 MG, 2X/DAY
     Route: 048
     Dates: start: 20110729, end: 20111129
  2. ESIDRIX [Concomitant]
     Dosage: UNK
     Dates: start: 20080101
  3. KEPPRA [Concomitant]
     Indication: EPILEPSY
     Dosage: 250 MG, 2X/DAY
     Route: 048
  4. INNOHEP [Concomitant]
     Dosage: 1 DF, 1X/DAY
     Dates: start: 20091001, end: 20111128
  5. AUGMENTIN [Concomitant]
     Indication: COLITIS
     Dosage: UNK
     Route: 048
     Dates: start: 20111126, end: 20111128
  6. PRIMPERAN TAB [Concomitant]
  7. PRAZEPAM [Concomitant]
     Indication: ANXIETY
     Dosage: 5 GTT, 1X/DAY
     Route: 048
     Dates: start: 20091001

REACTIONS (9)
  - C-REACTIVE PROTEIN INCREASED [None]
  - PANCREATITIS ACUTE [None]
  - GLOMERULONEPHROPATHY [None]
  - HAEMATURIA [None]
  - WHITE BLOOD CELL COUNT INCREASED [None]
  - PROTEINURIA [None]
  - RENAL FAILURE ACUTE [None]
  - NEPHROTIC SYNDROME [None]
  - HYPOALBUMINAEMIA [None]
